FAERS Safety Report 8987436 (Version 1)
Quarter: 2012Q4

REPORT INFORMATION
  Report Type: 
  Country: ES (occurrence: ES)
  Receive Date: 20121227
  Receipt Date: 20121227
  Transmission Date: 20130627
  Serious: Yes (Other)
  Sender: FDA-Public Use
  Company Number: ES-MERCK-1212ESP008921

PATIENT
  Age: 81 Year
  Sex: Male

DRUGS (6)
  1. ZOCOR [Suspect]
     Indication: HYPERTENSION
     Route: 048
     Dates: start: 2008, end: 20120613
  2. FORTZAAR 100 MG/25 MG, COMPRIM? PELLICUL? [Suspect]
     Indication: DYSLIPIDAEMIA
     Route: 048
     Dates: start: 2008, end: 20120613
  3. SYMBICORT TURBUHALER [Concomitant]
     Indication: CHRONIC OBSTRUCTIVE PULMONARY DISEASE
     Route: 055
  4. SPIRIVA [Concomitant]
     Indication: CHRONIC OBSTRUCTIVE PULMONARY DISEASE
     Route: 055
  5. AZOPT [Concomitant]
     Indication: GLAUCOMA
     Route: 047
  6. LUMIGAN [Concomitant]
     Indication: GLAUCOMA
     Route: 047

REACTIONS (1)
  - Axonal neuropathy [Recovered/Resolved with Sequelae]
